FAERS Safety Report 6140351-6 (Version None)
Quarter: 2009Q1

REPORT INFORMATION
  Report Type: 
  Country: None (occurrence: None)
  Receive Date: 20090330
  Receipt Date: 20090313
  Transmission Date: 20090719
  Serious: Yes (Other)
  Sender: FDA-Public Use
  Company Number: B0566102A

PATIENT
  Age: 51 Year
  Sex: Female

DRUGS (8)
  1. ORLISTAT (FORMULATION UNKNOWN) (GENERIC) (ORLITSTAT) [Suspect]
  2. GLICLAZIDE [Concomitant]
  3. METFORMIN HCL [Concomitant]
  4. WARFARIN SODIUM [Concomitant]
  5. ATORVASTATIN CALCIUM [Concomitant]
  6. CARVEDILOL [Concomitant]
  7. FRUSEMIDE [Concomitant]
  8. ENALAPRIL [Concomitant]

REACTIONS (3)
  - DIARRHOEA [None]
  - HYPOTENSION [None]
  - RENAL FAILURE ACUTE [None]
